FAERS Safety Report 14665309 (Version 11)
Quarter: 2018Q2

REPORT INFORMATION
  Report Type: Spontaneous
  Country: CA (occurrence: CA)
  Receive Date: 20180321
  Receipt Date: 20180611
  Transmission Date: 20180711
  Serious: Yes (Other)
  Sender: FDA-Public Use
  Company Number: CA-CELLTRION INC.-2018CA018669

PATIENT

DRUGS (15)
  1. INFLECTRA [Suspect]
     Active Substance: INFLIXIMAB-DYYB
     Indication: COLITIS ULCERATIVE
     Dosage: 265 MG,(5MG/KG) CYCLIC(EVERY 0, 2, 6 WEEKS, THE EVERY 8 WEEKS)
     Route: 042
     Dates: start: 20180222
  2. QUETIAPINE. [Concomitant]
     Active Substance: QUETIAPINE
     Dosage: 37.5 MG, DAILY
     Route: 065
     Dates: start: 201801
  3. INFLECTRA [Suspect]
     Active Substance: INFLIXIMAB-DYYB
     Dosage: 10 MG/KG (700 MG), EVERY 4 WEEKS
     Route: 042
     Dates: start: 20180511
  4. SERTRALINE [Concomitant]
     Active Substance: SERTRALINE HYDROCHLORIDE
     Dosage: 150 MG, DAILY
     Dates: start: 201711
  5. INFLECTRA [Suspect]
     Active Substance: INFLIXIMAB-DYYB
     Dosage: 10 MG/KG (700 MG), EVERY 4 WEEKS
     Route: 042
     Dates: start: 20180502
  6. INFLECTRA [Suspect]
     Active Substance: INFLIXIMAB-DYYB
     Dosage: 10 MG/KG (700 MG), EVERY 4 WEEKS
     Route: 042
     Dates: start: 20180511
  7. INFLECTRA [Suspect]
     Active Substance: INFLIXIMAB-DYYB
     Dosage: 700 MG, EVERY 4 WEEKS
     Route: 042
     Dates: start: 20180601
  8. INFLECTRA [Suspect]
     Active Substance: INFLIXIMAB-DYYB
     Dosage: 300 MG,(5MG/KG) CYCLIC(EVERY 0, 2, 6 WEEKS, THE EVERY 8 WEEKS)
     Route: 042
  9. INFLECTRA [Suspect]
     Active Substance: INFLIXIMAB-DYYB
     Dosage: 300 MG, CYCLIC(EVERY 0, 2, 6 WEEKS, THE EVERY 8 WEEKS)
     Route: 042
     Dates: start: 20180403
  10. PREDNISONE. [Concomitant]
     Active Substance: PREDNISONE
     Dosage: 40 MG, DAILY
     Route: 065
     Dates: start: 201802
  11. INFLECTRA [Suspect]
     Active Substance: INFLIXIMAB-DYYB
     Dosage: 265 MG,(5MG/KG) CYCLIC(EVERY 0, 2, 6 WEEKS, THE EVERY 8 WEEKS)
     Route: 042
     Dates: start: 20180308
  12. INFLECTRA [Suspect]
     Active Substance: INFLIXIMAB-DYYB
     Dosage: 5 MG/KG, CYCLIC (EVERY 0, 2, 6 WEEKS, THE EVERY 8 WEEKS)
     Route: 042
     Dates: start: 20180308
  13. MEZAVANT [Concomitant]
     Active Substance: MESALAMINE
     Dosage: 4.8 MG
     Route: 065
     Dates: start: 201802
  14. MIRTAZAPINE. [Concomitant]
     Active Substance: MIRTAZAPINE
     Dosage: 15 MG, DAILY
     Route: 065
     Dates: start: 201712
  15. ARIPIPRAZOLE. [Concomitant]
     Active Substance: ARIPIPRAZOLE
     Dosage: 2 MG, DAILY
     Route: 065
     Dates: start: 201712

REACTIONS (8)
  - Condition aggravated [Unknown]
  - Rectal haemorrhage [Not Recovered/Not Resolved]
  - Hot flush [Unknown]
  - Rash [Not Recovered/Not Resolved]
  - Drug prescribing error [Unknown]
  - Drug ineffective [Recovering/Resolving]
  - Feeling hot [Unknown]
  - Incorrect dose administered [Unknown]

NARRATIVE: CASE EVENT DATE: 201803
